FAERS Safety Report 9237863 (Version 2)
Quarter: 2013Q2

REPORT INFORMATION
  Report Type: Spontaneous
  Country: DE (occurrence: None)
  Receive Date: 20130415
  Receipt Date: 20130430
  Transmission Date: 20140414
  Serious: Yes (Other)
  Sender: FDA-Public Use
  Company Number: 1304-480

PATIENT
  Sex: Female

DRUGS (4)
  1. EYLEA [Suspect]
     Indication: AGE-RELATED MACULAR DEGENERATION
     Dosage: 1 IN 4 WK, INTRAVITREAL
     Dates: start: 201212
  2. ATENOLOL (ATENOLOL) [Concomitant]
  3. LEXAPRO (ESCITALOPRAM OXALATE) [Concomitant]
  4. MACU-VISION (MACUVISION) [Concomitant]

REACTIONS (3)
  - Retinal haemorrhage [None]
  - Retinal haemorrhage [None]
  - Choroidal neovascularisation [None]
